FAERS Safety Report 16628272 (Version 1)
Quarter: 2019Q3

REPORT INFORMATION
  Report Type: Report from Study
  Country: US (occurrence: US)
  Receive Date: 20190724
  Receipt Date: 20190724
  Transmission Date: 20191004
  Serious: Yes (Other)
  Sender: FDA-Public Use
  Company Number: US-TEVA-2019-US-1048455

PATIENT
  Sex: Male

DRUGS (1)
  1. COPAXONE [Suspect]
     Active Substance: GLATIRAMER ACETATE
     Dates: start: 20190504

REACTIONS (15)
  - Atrial flutter [Recovered/Resolved]
  - Injection site mass [Unknown]
  - Dyspnoea [Recovered/Resolved]
  - Migraine [Unknown]
  - Cold sweat [Unknown]
  - Loss of consciousness [Recovered/Resolved]
  - Injection site erythema [Unknown]
  - Tremor [Recovered/Resolved]
  - Injection site pain [Unknown]
  - Abnormal behaviour [Unknown]
  - Injection site pruritus [Unknown]
  - Chest discomfort [Recovered/Resolved]
  - Hyperhidrosis [Recovered/Resolved]
  - Panic attack [Unknown]
  - Gait disturbance [Unknown]

NARRATIVE: CASE EVENT DATE: 2019
